FAERS Safety Report 5831648-5 (Version None)
Quarter: 2008Q3

REPORT INFORMATION
  Report Type: 
  Country: None (occurrence: None)
  Receive Date: 20080730
  Receipt Date: 20080721
  Transmission Date: 20090109
  Serious: Yes (Life-Threatening, Hospitalization)
  Sender: FDA-Public Use
  Company Number: 2008AL008339

PATIENT
  Age: 61 Year
  Sex: Female
  Weight: 85.7298 kg

DRUGS (2)
  1. DIGOXIN [Suspect]
     Indication: TACHYCARDIA
     Dosage: 0.125MG, DAILY, PO
     Route: 048
     Dates: start: 19951001, end: 20080506
  2. PLAQUENIL [Concomitant]

REACTIONS (16)
  - AMNESIA [None]
  - ANOREXIA [None]
  - ASTHENIA [None]
  - BALANCE DISORDER [None]
  - CAROTID ARTERIOSCLEROSIS [None]
  - CENTRAL NERVOUS SYSTEM LESION [None]
  - DIZZINESS [None]
  - FALL [None]
  - FATIGUE [None]
  - JOINT INJURY [None]
  - MYOSITIS [None]
  - NAUSEA [None]
  - RIB FRACTURE [None]
  - SOMNOLENCE [None]
  - VISUAL IMPAIRMENT [None]
  - WEIGHT DECREASED [None]
